FAERS Safety Report 13247905 (Version 1)
Quarter: 2017Q1

REPORT INFORMATION
  Report Type: Spontaneous
  Country: US (occurrence: US)
  Receive Date: 20170217
  Receipt Date: 20170217
  Transmission Date: 20170428
  Serious: No
  Sender: FDA-Public Use
  Company Number: US-VIIV HEALTHCARE LIMITED-US2017GSK010216

PATIENT
  Weight: 61.69 kg

DRUGS (4)
  1. TIVICAY [Concomitant]
     Active Substance: DOLUTEGRAVIR SODIUM
     Indication: HIV INFECTION
  2. SELZENTRY [Suspect]
     Active Substance: MARAVIROC
     Indication: HIV INFECTION
     Dosage: 300 MG, SINGLE
     Route: 048
  3. VIAGRA [Concomitant]
     Active Substance: SILDENAFIL CITRATE
     Indication: ERECTILE DYSFUNCTION
     Dosage: 100 MG, PRN
  4. PREZCOBIX [Concomitant]
     Active Substance: COBICISTAT\DARUNAVIR ETHANOLATE
     Indication: HIV INFECTION

REACTIONS (2)
  - Incorrect dose administered [Unknown]
  - Circumstance or information capable of leading to medication error [Unknown]
